FAERS Safety Report 19115294 (Version 1)
Quarter: 2021Q2

REPORT INFORMATION
  Report Type: Other
  Country: GB (occurrence: GB)
  Receive Date: 20210409
  Receipt Date: 20210409
  Transmission Date: 20210717
  Serious: Yes (Other)
  Sender: FDA-Public Use
  Company Number: GB-LUPIN PHARMACEUTICALS INC.-2021-04392

PATIENT
  Age: 26 Year
  Sex: Male
  Weight: 114 kg

DRUGS (1)
  1. SERTRALINE [Suspect]
     Active Substance: SERTRALINE HYDROCHLORIDE
     Indication: DEPRESSION
     Dosage: 50 MILLIGRAM
     Route: 048
     Dates: start: 20200101, end: 20210320

REACTIONS (2)
  - Amnesia [Recovering/Resolving]
  - Dysphemia [Recovering/Resolving]

NARRATIVE: CASE EVENT DATE: 20200311
